FAERS Safety Report 15675645 (Version 2)
Quarter: 2019Q1

REPORT INFORMATION
  Report Type: Report from Study
  Country: US (occurrence: US)
  Receive Date: 20181130
  Receipt Date: 20190121
  Transmission Date: 20190417
  Serious: Yes (Other)
  Sender: FDA-Public Use
  Company Number: US-VELOXIS PHARMACEUTICALS, INC.-2018VELUS1265

PATIENT
  Age: 64 Year
  Sex: Male
  Weight: 91.6 kg

DRUGS (21)
  1. CHOLECALCIFEROL [Concomitant]
     Active Substance: CHOLECALCIFEROL
     Indication: VITAMIN D DEFICIENCY
     Dosage: 2000 INTL UNITS, QD
     Route: 048
     Dates: start: 201602
  2. PANTOPRAZOLE [Concomitant]
     Active Substance: PANTOPRAZOLE
     Indication: OESOPHAGEAL DISORDER
     Dosage: 40 MG, QD
     Route: 048
     Dates: start: 201602
  3. ENVARSUS XR [Suspect]
     Active Substance: TACROLIMUS
     Dosage: 2 MG, QD
     Route: 065
     Dates: start: 20180914, end: 20181019
  4. PREGABALIN. [Concomitant]
     Active Substance: PREGABALIN
     Indication: PAIN
     Dosage: 150 MG, QD
     Route: 048
     Dates: start: 201602
  5. MYCOPHENOLATE MOFETIL. [Concomitant]
     Active Substance: MYCOPHENOLATE MOFETIL
     Indication: LIVER TRANSPLANT
     Dosage: 1250 MG, QD
     Route: 048
     Dates: start: 201602
  6. ASPIRIN                            /00002701/ [Concomitant]
     Active Substance: ASPIRIN
     Indication: PAIN
     Dosage: 81 MG, QD
     Route: 048
     Dates: start: 201602
  7. INSULIN LISPRO [Concomitant]
     Active Substance: INSULIN LISPRO
     Indication: STEROID DIABETES
     Dosage: 18 UNITS, QD
     Route: 058
     Dates: start: 201602
  8. MAGNESIUM OXIDE. [Concomitant]
     Active Substance: MAGNESIUM OXIDE
     Indication: SUPPLEMENTATION THERAPY
     Dosage: 400 MG, QD
     Route: 048
     Dates: start: 201602
  9. NIFEDIPINE. [Concomitant]
     Active Substance: NIFEDIPINE
     Indication: BLOOD PRESSURE MANAGEMENT
     Dosage: 30 MG, QD
     Route: 048
     Dates: start: 201602
  10. ENVARSUS XR [Suspect]
     Active Substance: TACROLIMUS
     Indication: LIVER TRANSPLANT
     Dosage: 1.5 MG, QD
     Route: 065
     Dates: start: 20180815, end: 20180913
  11. ALENDRONATE [Concomitant]
     Active Substance: ALENDRONATE SODIUM
     Indication: OSTEOPOROSIS
     Dosage: 70 MG, QD
     Route: 048
     Dates: start: 201602
  12. DOCUSATE [Concomitant]
     Active Substance: DOCUSATE
     Indication: CONSTIPATION
     Dosage: 100 MG, QD
     Route: 048
     Dates: start: 201602
  13. CYANOCOBALAMIN. [Concomitant]
     Active Substance: CYANOCOBALAMIN
     Indication: SUPPLEMENTATION THERAPY
     Dosage: 1000 MG, QD
     Route: 048
     Dates: start: 201602
  14. MULTIVITAMIN WITH MINERALS [Concomitant]
     Active Substance: MINERALS\VITAMINS
     Indication: SUPPLEMENTATION THERAPY
     Dosage: N/A
     Route: 048
     Dates: start: 201602
  15. VEMLIDY [Concomitant]
     Active Substance: TENOFOVIR ALAFENAMIDE FUMARATE
     Indication: HEPATITIS B
     Dosage: 25 MG, QD
     Route: 048
     Dates: start: 201602
  16. CELLCEPT [Concomitant]
     Active Substance: MYCOPHENOLATE MOFETIL\MYCOPHENOLATE MOFETIL HYDROCHLORIDE
     Indication: LIVER TRANSPLANT
     Dosage: 250 MG, QD
     Route: 048
     Dates: start: 201602
  17. FERROUS SULFATE. [Concomitant]
     Active Substance: FERROUS SULFATE
     Indication: OSTEOPOROSIS
     Dosage: 325 MG, QD
     Route: 048
     Dates: start: 201602
  18. ENVARSUS XR [Suspect]
     Active Substance: TACROLIMUS
     Dosage: UNK
  19. DULOXETINE. [Concomitant]
     Active Substance: DULOXETINE
     Indication: DEPRESSION
     Dosage: 30 MG, QD
     Route: 048
     Dates: start: 201602
  20. INSULIN GLARGINE [Concomitant]
     Active Substance: INSULIN GLARGINE
     Indication: STEROID DIABETES
     Dosage: 22 UNITS, QD
     Route: 058
     Dates: start: 201602
  21. TAMSULOSIN [Concomitant]
     Active Substance: TAMSULOSIN
     Indication: PROSTATOMEGALY
     Dosage: 0.4 MG, QD
     Route: 048
     Dates: start: 201602

REACTIONS (2)
  - Aspartate aminotransferase increased [Recovered/Resolved]
  - Alanine aminotransferase increased [Recovered/Resolved]

NARRATIVE: CASE EVENT DATE: 20181017
